FAERS Safety Report 20154782 (Version 2)
Quarter: 2022Q1

REPORT INFORMATION
  Report Type: Report from Study
  Country: DE (occurrence: DE)
  Receive Date: 20211207
  Receipt Date: 20220117
  Transmission Date: 20220423
  Serious: Yes (Hospitalization, Other)
  Sender: FDA-Public Use
  Company Number: DE-NOVARTISPH-NVSC2021DE156249

PATIENT
  Sex: Female

DRUGS (3)
  1. ERELZI [Suspect]
     Active Substance: ETANERCEPT-SZZS
     Indication: Axial spondyloarthritis
     Dosage: 50 MG, QW
     Route: 065
     Dates: start: 20180222
  2. IBUPROFEN [Suspect]
     Active Substance: IBUPROFEN
     Indication: Axial spondyloarthritis
     Dosage: 2400 MG, QD (7 DAYS PER WEEK)
     Route: 065
     Dates: start: 20201127, end: 20210810
  3. CELECOXIB [Suspect]
     Active Substance: CELECOXIB
     Indication: Axial spondyloarthritis
     Dosage: 400 MG (7 DAYS PER WEEK)
     Route: 065
     Dates: start: 20210811

REACTIONS (10)
  - Osteoarthritis [Unknown]
  - Polyarthritis [Unknown]
  - Pain [Unknown]
  - Spinal cord injury [Unknown]
  - Condition aggravated [Unknown]
  - Sciatica [Recovered/Resolved]
  - Haemorrhoids [Unknown]
  - Hiatus hernia [Unknown]
  - Polyuria [Unknown]
  - Urge incontinence [Unknown]

NARRATIVE: CASE EVENT DATE: 20210111
